FAERS Safety Report 5638695-7 (Version None)
Quarter: 2008Q1

REPORT INFORMATION
  Report Type: 
  Country: None (occurrence: None)
  Receive Date: 20080226
  Receipt Date: 20080125
  Transmission Date: 20080703
  Serious: No
  Sender: FDA-Public Use
  Company Number: A0692333A

PATIENT
  Sex: Female

DRUGS (2)
  1. IMITREX [Suspect]
     Indication: MIGRAINE
     Route: 058
  2. INDERAL [Concomitant]
     Indication: MIGRAINE PROPHYLAXIS
     Dosage: 90MG TWICE PER DAY
     Route: 048

REACTIONS (6)
  - DRUG INEFFECTIVE [None]
  - ILL-DEFINED DISORDER [None]
  - INFUSION SITE PAIN [None]
  - MUSCLE TIGHTNESS [None]
  - PAIN [None]
  - PHARMACEUTICAL PRODUCT COMPLAINT [None]
